FAERS Safety Report 18573122 (Version 1)
Quarter: 2020Q4

REPORT INFORMATION
  Report Type: Spontaneous
  Country: GB (occurrence: GB)
  Receive Date: 20201203
  Receipt Date: 20201203
  Transmission Date: 20210114
  Serious: Yes (Life-Threatening)
  Sender: FDA-Public Use
  Company Number: GB-TEVA-2020-GB-1854280

PATIENT
  Age: 16 Year
  Sex: Male
  Weight: 65 kg

DRUGS (1)
  1. OFLOXACIN. [Suspect]
     Active Substance: OFLOXACIN
     Indication: EPIDIDYMITIS
     Dosage: 400 MG
     Route: 048
     Dates: start: 20200518, end: 20200605

REACTIONS (4)
  - Acute psychosis [Recovered/Resolved]
  - Hallucination, auditory [Recovered/Resolved]
  - Suicidal ideation [Recovered/Resolved]
  - Delusion [Recovered/Resolved]

NARRATIVE: CASE EVENT DATE: 20200530
